FAERS Safety Report 4559344-5 (Version None)
Quarter: 2005Q1

REPORT INFORMATION
  Report Type: 
  Country: None (occurrence: None)
  Receive Date: 20050124
  Receipt Date: 20050114
  Transmission Date: 20050727
  Serious: Yes (Hospitalization)
  Sender: FDA-Public Use
  Company Number: US-BRISTOL-MYERS SQUIBB COMPANY-12833059

PATIENT
  Age: 59 Year
  Sex: Male

DRUGS (8)
  1. ATENOLOL [Suspect]
     Indication: HYPERTENSION
     Route: 048
  2. PRINIVIL [Suspect]
     Indication: HYPERTENSION
     Route: 048
  3. ASPIRIN [Concomitant]
  4. DOXEPIN HCL [Concomitant]
  5. FUROSEMIDE [Concomitant]
  6. LORATADINE [Concomitant]
  7. NAPROXEN [Concomitant]
  8. NIACIN [Concomitant]

REACTIONS (2)
  - DIZZINESS [None]
  - FALL [None]
